FAERS Safety Report 5645534-7 (Version None)
Quarter: 2008Q1

REPORT INFORMATION
  Report Type: 
  Country: None (occurrence: None)
  Receive Date: 20080229
  Receipt Date: 20080215
  Transmission Date: 20080703
  Serious: Yes (Hospitalization, Other)
  Sender: FDA-Public Use
  Company Number: GB-BAYER-200810291BNE

PATIENT
  Sex: Male

DRUGS (1)
  1. ULTRAVIST 300 [Suspect]
     Indication: COMPUTERISED TOMOGRAM
     Route: 042
     Dates: start: 20080204, end: 20080204

REACTIONS (9)
  - ANAPHYLACTIC REACTION [None]
  - ASTHMA [None]
  - COUGH [None]
  - DYSPNOEA [None]
  - EYE SWELLING [None]
  - LACRIMATION INCREASED [None]
  - RASH [None]
  - SNEEZING [None]
  - SWELLING FACE [None]
